FAERS Safety Report 8347281-X (Version None)
Quarter: 2012Q2

REPORT INFORMATION
  Report Type: 
  Country: None (occurrence: None)
  Receive Date: 20120509
  Receipt Date: 20120501
  Transmission Date: 20120825
  Serious: Yes (Hospitalization, Other)
  Sender: FDA-Public Use
  Company Number: US-ASTRAZENECA-2012SE28408

PATIENT
  Age: 77 Year
  Sex: Male

DRUGS (4)
  1. PLAVIX [Concomitant]
  2. CRESTOR [Suspect]
     Route: 048
  3. PRADAXA [Concomitant]
  4. SYNTHROID [Concomitant]

REACTIONS (16)
  - CHRONIC OBSTRUCTIVE PULMONARY DISEASE [None]
  - ARTERIAL THROMBOSIS LIMB [None]
  - ANEURYSM [None]
  - AMPUTATION STUMP PAIN [None]
  - DEHYDRATION [None]
  - COMPARTMENT SYNDROME [None]
  - MALAISE [None]
  - CARDIAC DISORDER [None]
  - NEPHROPATHY [None]
  - DIABETES MELLITUS [None]
  - STAPHYLOCOCCAL INFECTION [None]
  - NEUROPATHY PERIPHERAL [None]
  - RENAL FAILURE [None]
  - PAIN [None]
  - TREMOR [None]
  - HYPERSENSITIVITY [None]
